FAERS Safety Report 25663717 (Version 2)
Quarter: 2025Q3

REPORT INFORMATION
  Report Type: Spontaneous
  Country: AR (occurrence: AR)
  Receive Date: 20250811
  Receipt Date: 20250901
  Transmission Date: 20251020
  Serious: Yes (Other)
  Sender: SANDOZ
  Company Number: AR-002147023-NVSC2025AR118716

PATIENT
  Sex: Female

DRUGS (3)
  1. COSENTYX [Suspect]
     Active Substance: SECUKINUMAB
     Indication: Psoriatic arthropathy
     Dosage: 150 MG, QMO
     Route: 058
     Dates: start: 20190930
  2. COSENTYX [Suspect]
     Active Substance: SECUKINUMAB
     Dosage: 300 MG, QMO SINCE 18 MONTHS AGO
     Route: 058
  3. METHOTREXATE [Suspect]
     Active Substance: METHOTREXATE
     Indication: Product used for unknown indication
     Dosage: 10 MG, QW
     Route: 065

REACTIONS (9)
  - Psoriatic arthropathy [Recovering/Resolving]
  - Arthritis [Recovering/Resolving]
  - Arthralgia [Recovering/Resolving]
  - Ligament sprain [Recovering/Resolving]
  - Emotional disorder [Recovering/Resolving]
  - Foot deformity [Recovering/Resolving]
  - Depression [Recovering/Resolving]
  - Anxiety [Unknown]
  - Mood altered [Unknown]

NARRATIVE: CASE EVENT DATE: 20190101
